FAERS Safety Report 9204097 (Version 1)
Quarter: 2013Q2

REPORT INFORMATION
  Report Type: Spontaneous
  Country: US (occurrence: US)
  Receive Date: 20130402
  Receipt Date: 20130402
  Transmission Date: 20140414
  Serious: Yes (Other)
  Sender: FDA-Public Use
  Company Number: US-PFIZER INC-2013101080

PATIENT
  Age: 51 Year
  Sex: Female
  Weight: 54.42 kg

DRUGS (4)
  1. SILDENAFIL CITRATE [Suspect]
     Indication: PULMONARY ARTERIAL HYPERTENSION
     Dosage: 20 MG, 3X/DAY
     Route: 048
     Dates: start: 201301, end: 2013
  2. SILDENAFIL CITRATE [Suspect]
     Dosage: 20 MG, 2X/DAY
     Route: 048
     Dates: start: 2013
  3. WARFARIN [Concomitant]
     Dosage: UNK
  4. TRACLEER [Concomitant]
     Indication: PULMONARY ARTERIAL HYPERTENSION
     Dosage: UNK

REACTIONS (6)
  - Hypoxia [Not Recovered/Not Resolved]
  - Hyperventilation [Not Recovered/Not Resolved]
  - Pain [Not Recovered/Not Resolved]
  - Fatigue [Not Recovered/Not Resolved]
  - Myalgia [Not Recovered/Not Resolved]
  - Drug ineffective [Unknown]
